FAERS Safety Report 8020409-7 (Version None)
Quarter: 2012Q1

REPORT INFORMATION
  Report Type: 
  Country: None (occurrence: None)
  Receive Date: 20120103
  Receipt Date: 20111221
  Transmission Date: 20120608
  Serious: Yes (Life-Threatening)
  Sender: FDA-Public Use
  Company Number: FR-SANOFI-AVENTIS-2011SA083657

PATIENT
  Age: 45 Year
  Sex: Male
  Weight: 71 kg

DRUGS (4)
  1. RIFADIN [Suspect]
     Route: 048
     Dates: start: 19990330, end: 19990520
  2. PYRAZINAMIDE [Suspect]
     Route: 048
     Dates: start: 19990330, end: 19990520
  3. RIMIFON [Concomitant]
     Route: 048
     Dates: start: 19990330, end: 19990520
  4. MYAMBUTOL [Concomitant]
     Route: 048
     Dates: start: 19990330, end: 19990520

REACTIONS (1)
  - HEPATITIS FULMINANT [None]
